FAERS Safety Report 7742108 (Version 3)
Quarter: 2013Q4

REPORT INFORMATION
  Report Type: Report from Study
  Country: NL (occurrence: NL)
  Receive Date: 20101228
  Receipt Date: 20131202
  Transmission Date: 20140711
  Serious: Yes (Death, Hospitalization)
  Sender: FDA-Public Use
  Company Number: NL-PFIZER INC-2010177304

PATIENT
  Age: 63 Year
  Sex: Male

DRUGS (5)
  1. SUTENT [Suspect]
     Indication: METASTATIC RENAL CELL CARCINOMA
     Dosage: UNK
     Dates: start: 20100909, end: 20101216
  2. FRAXODI [Suspect]
     Dosage: 0.6 UNK, UNK
     Route: 058
     Dates: start: 20101114, end: 20101216
  3. FENTANYL [Concomitant]
     Dosage: 50 UG, 3X/DAY
     Dates: start: 2010
  4. PARACETAMOL [Concomitant]
     Dosage: 1000 MG, 4X/DAY
     Dates: start: 2010
  5. CINNARIZINE [Concomitant]
     Dosage: 25 MG, 3X/DAY
     Dates: start: 20101030

REACTIONS (1)
  - Haemorrhage intracranial [Fatal]
